FAERS Safety Report 23755944 (Version 1)
Quarter: 2024Q2

REPORT INFORMATION
  Report Type: Spontaneous
  Country: US (occurrence: None)
  Receive Date: 20240417
  Receipt Date: 20240417
  Transmission Date: 20240716
  Serious: Yes (Death)
  Sender: FDA-Public Use
  Company Number: None

PATIENT
  Age: 46 Year
  Sex: Female
  Weight: 93 kg

DRUGS (6)
  1. EPCLUSA [Suspect]
     Active Substance: SOFOSBUVIR\VELPATASVIR
     Indication: Chronic hepatitis C
     Dosage: 1 TABLET DAILY ORAL?
     Route: 048
     Dates: start: 202403
  2. BUSPAR [Concomitant]
     Active Substance: BUSPIRONE HYDROCHLORIDE
  3. Methocarbimol [Concomitant]
  4. TOPAMAX [Concomitant]
     Active Substance: TOPIRAMATE
  5. WELLBUTRIN [Concomitant]
  6. BLACK COHOSH [Concomitant]
     Active Substance: BLACK COHOSH

REACTIONS (1)
  - Death [None]

NARRATIVE: CASE EVENT DATE: 20240401
